FAERS Safety Report 5568330-8 (Version None)
Quarter: 2007Q4

REPORT INFORMATION
  Report Type: 
  Country: None (occurrence: None)
  Receive Date: 20071220
  Receipt Date: 20071210
  Transmission Date: 20080405
  Serious: Yes (Other)
  Sender: FDA-Public Use
  Company Number: US-BAUSCH-2007BL004452

PATIENT
  Age: 38 Year
  Sex: Female

DRUGS (1)
  1. NEOMYCIN AND POLYMXIN B SULFATES AND HYDROCORTISONE [Suspect]
     Route: 047
     Dates: start: 20061019, end: 20061019

REACTIONS (9)
  - ASTIGMATISM [None]
  - BLINDNESS TRANSIENT [None]
  - CHEMICAL INJURY [None]
  - DRUG DISPENSING ERROR [None]
  - DRUG TOXICITY [None]
  - INJURY CORNEAL [None]
  - MEDICATION ERROR [None]
  - MYOPIA [None]
  - VISUAL ACUITY REDUCED [None]
